FAERS Safety Report 8303908-X (Version None)
Quarter: 2012Q2

REPORT INFORMATION
  Report Type: 
  Country: None (occurrence: None)
  Receive Date: 20120420
  Receipt Date: 20120420
  Transmission Date: 20120825
  Serious: No
  Sender: FDA-Public Use
  Company Number: None

PATIENT
  Sex: Male

DRUGS (4)
  1. CYTOXAN [Concomitant]
  2. RITUXAN 500MG VIALS GENENTECH [Suspect]
     Indication: LYMPHOMA
     Dosage: 765 MG IV Q3W
  3. RITUXAN [Suspect]
  4. VINCRISTINE [Concomitant]

REACTIONS (6)
  - INFUSION RELATED REACTION [None]
  - DYSPNOEA [None]
  - HEART RATE INCREASED [None]
  - CHILLS [None]
  - NAUSEA [None]
  - BLOOD PRESSURE INCREASED [None]
